FAERS Safety Report 23850026 (Version 1)
Quarter: 2024Q2

REPORT INFORMATION
  Report Type: Spontaneous
  Country: US (occurrence: None)
  Receive Date: 20240513
  Receipt Date: 20240513
  Transmission Date: 20240717
  Serious: Yes (Life-Threatening, Hospitalization)
  Sender: FDA-Public Use
  Company Number: None

PATIENT
  Age: 58 Year
  Sex: Male
  Weight: 96.1 kg

DRUGS (3)
  1. PROCHLORPERAZINE [Suspect]
     Active Substance: PROCHLORPERAZINE
     Indication: Nausea
     Dosage: 10 MG ONCE IV
     Route: 042
     Dates: start: 20190114, end: 20190114
  2. PROCHLORPERAZINE [Suspect]
     Active Substance: PROCHLORPERAZINE
     Indication: Vomiting
  3. ONDANSETRON HYDROCHLORIDE [Suspect]
     Active Substance: ONDANSETRON HYDROCHLORIDE
     Dosage: 4 MG : OTHER IV?
     Route: 042
     Dates: start: 20190114, end: 20190114

REACTIONS (2)
  - Electrocardiogram QT prolonged [None]
  - Torsade de pointes [None]

NARRATIVE: CASE EVENT DATE: 20190114
